FAERS Safety Report 15839878 (Version 1)
Quarter: 2019Q1

REPORT INFORMATION
  Report Type: Spontaneous
  Country: US (occurrence: US)
  Receive Date: 20190117
  Receipt Date: 20190117
  Transmission Date: 20190417
  Serious: No
  Sender: FDA-Public Use
  Company Number: US-GLAXOSMITHKLINE-US2019004253

PATIENT
  Sex: Male

DRUGS (3)
  1. VENTOLIN HFA [Suspect]
     Active Substance: ALBUTEROL SULFATE
     Indication: DYSPNOEA
     Route: 048
  2. OXYGEN. [Concomitant]
     Active Substance: OXYGEN
  3. ALBUTEROL WITH NEBULIZER [Concomitant]
     Active Substance: ALBUTEROL

REACTIONS (1)
  - Wrong technique in product usage process [Recovered/Resolved]
